FAERS Safety Report 21513448 (Version 4)
Quarter: 2023Q2

REPORT INFORMATION
  Report Type: Report from Study
  Country: DE (occurrence: DE)
  Receive Date: 20221027
  Receipt Date: 20230503
  Transmission Date: 20230721
  Serious: Yes (Hospitalization)
  Sender: FDA-Public Use
  Company Number: DE-BAYER-2022A143517

PATIENT
  Age: 54 Year
  Sex: Female
  Weight: 78 kg

DRUGS (19)
  1. COPANLISIB [Suspect]
     Active Substance: COPANLISIB
     Indication: Follicular lymphoma
     Dosage: 60 MG
     Route: 041
     Dates: start: 20211130, end: 20221004
  2. OBINUTUZUMAB [Suspect]
     Active Substance: OBINUTUZUMAB
     Indication: Follicular lymphoma
     Dosage: 1000 MG
     Route: 041
     Dates: start: 20211130, end: 20220920
  3. CIMETIDINE [Concomitant]
     Active Substance: CIMETIDINE
     Indication: Prophylaxis
     Dosage: UNK
     Dates: start: 20211130
  4. CLEMASTINE [Concomitant]
     Active Substance: CLEMASTINE
     Indication: Prophylaxis
     Dosage: UNK
     Dates: start: 20211130
  5. PREDNISOLONE [Concomitant]
     Active Substance: PREDNISOLONE
     Indication: Prophylaxis
     Dosage: UNK
     Dates: start: 20211130
  6. LAVANID [Concomitant]
     Indication: Herpes zoster
     Dosage: UNK
     Dates: start: 20220419
  7. CAPSAICIN [Concomitant]
     Active Substance: CAPSAICIN
     Indication: Herpes zoster
     Dosage: UNK
     Dates: start: 20220531
  8. ACYCLOVIR [Concomitant]
     Active Substance: ACYCLOVIR
     Indication: Prophylaxis
     Dosage: 400
     Dates: start: 20211201
  9. CHOLECALCIFEROL [Concomitant]
     Active Substance: CHOLECALCIFEROL
     Indication: Prophylaxis
     Dosage: UNK
     Dates: start: 20211209
  10. INNOHEP [Concomitant]
     Active Substance: TINZAPARIN SODIUM
     Indication: Thrombophlebitis
     Dosage: UNK
     Dates: start: 20211214
  11. FRESUBIN [CARBOHYDRATES NOS;FATTY ACIDS NOS;MINERALS NOS;PROTEINS [Concomitant]
     Indication: Decreased appetite
     Dosage: UNK
     Dates: start: 20211229
  12. DERMOXIN [CLOBETASOL PROPIONATE] [Concomitant]
     Indication: Herpes zoster
     Dosage: UNK
     Dates: start: 20220603
  13. PANTOPRAZOLE [Concomitant]
     Active Substance: PANTOPRAZOLE
     Indication: Gastritis prophylaxis
     Dosage: UNK
     Dates: start: 20220112
  14. IBUPROFEN [Concomitant]
     Active Substance: IBUPROFEN
     Indication: Herpes zoster
     Dosage: UNK
     Dates: start: 20220824
  15. GLANDOMED [Concomitant]
     Indication: Herpes zoster
     Dosage: UNK
     Dates: start: 20220223
  16. POLYETHYLENE GLYCOL\POTASSIUM CHLORIDE\SODIUM BICARBONATE\SODIUM CHLOR [Concomitant]
     Active Substance: POLYETHYLENE GLYCOL\POTASSIUM CHLORIDE\SODIUM BICARBONATE\SODIUM CHLORIDE
     Indication: Herpes zoster
     Dosage: UNK
     Dates: start: 20220419
  17. GRANISETRON [Concomitant]
     Active Substance: GRANISETRON
     Dosage: UNK
     Dates: start: 20220824
  18. POSIFORMIN [Concomitant]
     Indication: Eyelid infection
     Dosage: 2%
     Dates: start: 20221005
  19. HYALURONATE SODIUM [Concomitant]
     Active Substance: HYALURONATE SODIUM
     Indication: Eyelid infection
     Dosage: UNK
     Dates: start: 20221005

REACTIONS (1)
  - Neutrophilic dermatosis [Recovered/Resolved]

NARRATIVE: CASE EVENT DATE: 20221011
